FAERS Safety Report 7365407-1 (Version None)
Quarter: 2011Q1

REPORT INFORMATION
  Report Type: 
  Country: None (occurrence: None)
  Receive Date: 20110322
  Receipt Date: 20091120
  Transmission Date: 20110831
  Serious: No
  Sender: FDA-Public Use
  Company Number: 2009BI038170

PATIENT
  Age: 57 Year
  Sex: Female

DRUGS (1)
  1. TYSABRI [Suspect]
     Indication: MULTIPLE SCLEROSIS
     Route: 042
     Dates: start: 20080514

REACTIONS (11)
  - GAIT DISTURBANCE [None]
  - LIMB INJURY [None]
  - NASOPHARYNGITIS [None]
  - MUSCLE SPASTICITY [None]
  - EYE INFECTION [None]
  - PAIN IN EXTREMITY [None]
  - EAR INFECTION [None]
  - FALL [None]
  - URINARY TRACT INFECTION [None]
  - MUSCULAR WEAKNESS [None]
  - INCONTINENCE [None]
